FAERS Safety Report 9143033 (Version 1)
Quarter: 2013Q1

REPORT INFORMATION
  Report Type: Spontaneous
  Country: US (occurrence: US)
  Receive Date: 20130306
  Receipt Date: 20130306
  Transmission Date: 20140127
  Serious: Yes (Hospitalization)
  Sender: FDA-Public Use
  Company Number: US-ENDO PHARMACEUTICALS INC.-OPER20110246

PATIENT
  Age: 27 Year
  Sex: Male

DRUGS (1)
  1. OPANA ER [Suspect]
     Indication: BACK PAIN
     Route: 048
     Dates: start: 20110715, end: 20110730

REACTIONS (2)
  - Drug ineffective [Recovered/Resolved]
  - Withdrawal syndrome [Unknown]
